FAERS Safety Report 16817378 (Version 6)
Quarter: 2019Q4

REPORT INFORMATION
  Report Type: Report from Study
  Country: AU (occurrence: AU)
  Receive Date: 20190917
  Receipt Date: 20191203
  Transmission Date: 20200122
  Serious: Yes (Death, Hospitalization, Other)
  Sender: FDA-Public Use
  Company Number: AU-ASTRAZENECA-2019SF30127

PATIENT
  Age: 27195 Day
  Sex: Male
  Weight: 90.8 kg

DRUGS (4)
  1. MOXETUMOMAB [Suspect]
     Active Substance: MOXETUMOMAB PASUDOTOX
     Indication: HAIRY CELL LEUKAEMIA
     Route: 042
     Dates: start: 20190720, end: 20190802
  2. ECULIZUMAB [Concomitant]
     Active Substance: ECULIZUMAB
  3. VALACYCLOVIR [Concomitant]
     Active Substance: VALACYCLOVIR HYDROCHLORIDE
  4. ASPIRIN. [Concomitant]
     Active Substance: ASPIRIN

REACTIONS (2)
  - Atypical haemolytic uraemic syndrome [Fatal]
  - Cytokine release syndrome [Recovered/Resolved]

NARRATIVE: CASE EVENT DATE: 20190801
